FAERS Safety Report 17864706 (Version 2)
Quarter: 2020Q2

REPORT INFORMATION
  Report Type: Spontaneous
  Country: US (occurrence: US)
  Receive Date: 20200605
  Receipt Date: 20200628
  Transmission Date: 20200714
  Serious: No
  Sender: FDA-Public Use
  Company Number: US-GLAXOSMITHKLINE-US2020AMR092282

PATIENT
  Sex: Female

DRUGS (1)
  1. ZEJULA [Suspect]
     Active Substance: NIRAPARIB
     Indication: INTRADUCTAL PROLIFERATIVE BREAST LESION
     Dosage: 300 MG, DAILY
     Dates: start: 20200505

REACTIONS (8)
  - Anxiety [Unknown]
  - White blood cell count decreased [Unknown]
  - Palpitations [Unknown]
  - Head discomfort [Unknown]
  - Feeling abnormal [Unknown]
  - Blood pressure abnormal [Recovering/Resolving]
  - Malaise [Unknown]
  - Constipation [Unknown]
